FAERS Safety Report 7819249-0 (Version None)
Quarter: 2011Q4

REPORT INFORMATION
  Report Type: 
  Country: None (occurrence: None)
  Receive Date: 20111018
  Receipt Date: 20100902
  Transmission Date: 20120403
  Serious: No
  Sender: FDA-Public Use
  Company Number: US-ASTRAZENECA-2010SE41336

PATIENT
  Sex: Female

DRUGS (1)
  1. SYMBICORT [Suspect]
     Dosage: 160 MCG TWO TIMES A DAY
     Route: 055

REACTIONS (2)
  - FEELING ABNORMAL [None]
  - INCORRECT DRUG ADMINISTRATION DURATION [None]
